FAERS Safety Report 8947208 (Version 1)
Quarter: 2012Q4

REPORT INFORMATION
  Report Type: 
  Country: VE (occurrence: VE)
  Receive Date: 20121205
  Receipt Date: 20121205
  Transmission Date: 20130627
  Serious: Yes (Death, Other)
  Sender: FDA-Public Use
  Company Number: VE-ROCHE-1162398

PATIENT
  Age: 69 Year
  Sex: Male

DRUGS (1)
  1. XOLAIR [Suspect]
     Indication: ASTHMA
     Route: 058
     Dates: start: 201104, end: 201204

REACTIONS (3)
  - Pleural effusion [Fatal]
  - Respiratory arrest [Fatal]
  - Cardiovascular disorder [Unknown]
